FAERS Safety Report 5480343-3 (Version None)
Quarter: 2007Q3

REPORT INFORMATION
  Report Type: 
  Country: None (occurrence: None)
  Receive Date: 20070914
  Receipt Date: 20061115
  Transmission Date: 20080115
  Serious: Yes (Hospitalization)
  Sender: FDA-Public Use
  Company Number: 06P-163-0350648-00

PATIENT
  Age: 69 Year
  Sex: Male
  Weight: 77.1115 kg

DRUGS (10)
  1. SYNTHROID [Suspect]
     Indication: HYPERTHYROIDISM
     Dosage: 0.25 MG, 1 IN 1 D, PER ORAL
     Route: 048
     Dates: start: 20060801
  2. POTASSIUM CHLORIDE [Concomitant]
  3. CARVEDILOL [Concomitant]
  4. FUROSEMIDE [Concomitant]
  5. PROSCAR [Concomitant]
  6. ZESTRIL [Concomitant]
  7. WARFARIN SODIUM [Concomitant]
  8. CILOSTAZOL [Concomitant]
  9. NISOLDIPINE [Concomitant]
  10. DIGOXIN [Concomitant]

REACTIONS (2)
  - CARDIAC FAILURE [None]
  - LIBIDO DECREASED [None]
